FAERS Safety Report 20708751 (Version 1)
Quarter: 2022Q2

REPORT INFORMATION
  Report Type: Spontaneous
  Country: AU (occurrence: AU)
  Receive Date: 20220414
  Receipt Date: 20220414
  Transmission Date: 20220721
  Serious: Yes (Other)
  Sender: FDA-Public Use
  Company Number: AU-GRUNENTHAL-2022-102923

PATIENT
  Sex: Female

DRUGS (2)
  1. TRAMADOL HYDROCHLORIDE [Suspect]
     Active Substance: TRAMADOL HYDROCHLORIDE
     Indication: Fibromyalgia
     Dosage: 50 MILLIGRAM, 3/DAY
     Route: 065
  2. TRAMADOL HYDROCHLORIDE [Suspect]
     Active Substance: TRAMADOL HYDROCHLORIDE
     Indication: Arthritis
     Dosage: 50 MILLIGRAM, 2/DAY
     Route: 065

REACTIONS (11)
  - Haemorrhoids [Unknown]
  - Polyp [Unknown]
  - Dry skin [Unknown]
  - Pollakiuria [Unknown]
  - Nausea [Unknown]
  - Diverticulitis [Unknown]
  - Oesophageal disorder [Unknown]
  - Therapeutic response unexpected [Unknown]
  - Hot flush [Unknown]
  - Product dose omission issue [Unknown]
  - Inappropriate schedule of product administration [Unknown]

NARRATIVE: CASE EVENT DATE: 20220407
